FAERS Safety Report 4551456-5 (Version None)
Quarter: 2005Q1

REPORT INFORMATION
  Report Type: 
  Country: None (occurrence: None)
  Receive Date: 20050107
  Receipt Date: 20041208
  Transmission Date: 20050727
  Serious: Yes (Other)
  Sender: FDA-Public Use
  Company Number: S04-FRA-07536-01

PATIENT
  Age: 54 Year
  Sex: Male

DRUGS (1)
  1. EBIXA(MEMANTINE) [Suspect]
     Indication: VASCULAR DEMENTIA

REACTIONS (2)
  - GENERALISED OEDEMA [None]
  - SCLEROEDEMA [None]
